FAERS Safety Report 6672450-4 (Version None)
Quarter: 2010Q2

REPORT INFORMATION
  Report Type: 
  Country: None (occurrence: None)
  Receive Date: 20100408
  Receipt Date: 20100330
  Transmission Date: 20101027
  Serious: Yes (Death, Life-Threatening)
  Sender: FDA-Public Use
  Company Number: IN-JNJFOC-20100400449

PATIENT
  Sex: Female
  Weight: 48 kg

DRUGS (13)
  1. GOLIMUMAB [Suspect]
     Indication: RHEUMATOID ARTHRITIS
     Route: 058
  2. GOLIMUMAB [Suspect]
     Route: 058
  3. PLACEBO [Suspect]
     Indication: RHEUMATOID ARTHRITIS
     Route: 048
  4. PLACEBO [Suspect]
     Route: 048
  5. PLACEBO [Suspect]
     Route: 048
  6. PLACEBO [Suspect]
     Route: 048
  7. PLACEBO [Suspect]
     Route: 048
  8. PLACEBO [Suspect]
     Route: 048
  9. PARACETAMOL [Concomitant]
     Route: 048
  10. FOLIC ACID [Concomitant]
     Route: 048
  11. CALCIUM CITRATE AND VITAMIN D [Concomitant]
     Route: 048
  12. METHOTREXATE [Concomitant]
     Route: 048
  13. METHOTREXATE [Concomitant]
     Route: 048

REACTIONS (2)
  - HAEMATEMESIS [None]
  - HAEMATOCHEZIA [None]
